FAERS Safety Report 7865151-8 (Version None)
Quarter: 2011Q4

REPORT INFORMATION
  Report Type: 
  Country: None (occurrence: None)
  Receive Date: 20111028
  Receipt Date: 20101021
  Transmission Date: 20120403
  Serious: No
  Sender: FDA-Public Use
  Company Number: US-GLAXOSMITHKLINE-A0888066A

PATIENT
  Sex: Female

DRUGS (5)
  1. VENTOLIN HFA [Concomitant]
  2. BLOOD PRESSURE MEDICATION [Concomitant]
  3. FLONASE [Concomitant]
  4. DIURETIC [Concomitant]
  5. ADVAIR DISKUS 100/50 [Suspect]
     Indication: ASTHMA
     Dosage: 1PUFF TWICE PER DAY
     Route: 055
     Dates: start: 20100101

REACTIONS (4)
  - ORAL PAIN [None]
  - DYSPHAGIA [None]
  - STOMATITIS [None]
  - THROAT IRRITATION [None]
